FAERS Safety Report 5262663-0 (Version None)
Quarter: 2007Q1

REPORT INFORMATION
  Report Type: 
  Country: None (occurrence: None)
  Receive Date: 20061219
  Receipt Date: 20060724
  Transmission Date: 20070707
  Serious: Yes (Other)
  Sender: FDA-Public Use
  Company Number: 2006091166

PATIENT
  Age: 13 Year
  Sex: Male

DRUGS (1)
  1. ZYRTEC-D 12 HOUR [Suspect]
     Indication: RHINITIS ALLERGIC
     Dosage: 10/240 MG (2 IN 1 D)
     Dates: start: 20060101

REACTIONS (1)
  - PURPURA [None]
